FAERS Safety Report 21701025 (Version 1)
Quarter: 2022Q4

REPORT INFORMATION
  Report Type: Spontaneous
  Country: CN (occurrence: CN)
  Receive Date: 20221208
  Receipt Date: 20221208
  Transmission Date: 20230113
  Serious: Yes (Hospitalization, Other)
  Sender: FDA-Public Use
  Company Number: CN-GLAXOSMITHKLINE-CNCH2022APC046862

PATIENT
  Age: 58 Year
  Sex: Male
  Weight: 68 kg

DRUGS (3)
  1. DICLOFENAC SODIUM [Suspect]
     Active Substance: DICLOFENAC SODIUM
     Indication: Pain
     Dosage: 0.1 G, QD
     Route: 048
     Dates: start: 20221106, end: 20221110
  2. DICLOFENAC SODIUM [Suspect]
     Active Substance: DICLOFENAC SODIUM
     Indication: Gout
  3. COLCHICINE [Suspect]
     Active Substance: COLCHICINE
     Indication: Gout
     Dosage: 0.5 MG, BID
     Route: 048
     Dates: start: 20221106, end: 20221110

REACTIONS (15)
  - Duodenal ulcer [Recovering/Resolving]
  - Duodenal ulcer haemorrhage [Recovering/Resolving]
  - Amaurosis [Recovering/Resolving]
  - Gastric ulcer [Recovering/Resolving]
  - Abdominal pain upper [Recovering/Resolving]
  - Atrioventricular block first degree [Recovering/Resolving]
  - Back pain [Recovering/Resolving]
  - Primary hypothyroidism [Recovering/Resolving]
  - Duodenitis [Recovering/Resolving]
  - Gastric mucosal lesion [Recovering/Resolving]
  - Chronic gastritis [Recovering/Resolving]
  - Dizziness [Recovering/Resolving]
  - Hypertension [Recovering/Resolving]
  - Abdominal pain [Recovering/Resolving]
  - Incorrect dose administered [Unknown]

NARRATIVE: CASE EVENT DATE: 20221106
